FAERS Safety Report 24221080 (Version 2)
Quarter: 2024Q4

REPORT INFORMATION
  Report Type: Spontaneous
  Country: JP (occurrence: JP)
  Receive Date: 20240819
  Receipt Date: 20241023
  Transmission Date: 20250115
  Serious: Yes (Hospitalization)
  Sender: AMGEN
  Company Number: JP-KISSEI-TV20240609_P_1

PATIENT
  Age: 66 Year
  Sex: Male

DRUGS (7)
  1. TAVNEOS [Suspect]
     Active Substance: AVACOPAN
     Indication: Microscopic polyangiitis
     Dosage: 60 MG/DAY.DATE OF LAST ADMINISTRATION: 29.JUL.2024.
     Route: 048
     Dates: start: 20240610, end: 20240731
  2. BONALON [Concomitant]
     Active Substance: ALENDRONATE SODIUM
     Dosage: UNK
  3. LANSOPRAZOLE [Concomitant]
     Active Substance: LANSOPRAZOLE
     Dosage: UNK
  4. SULFAMETHOXAZOLE\TRIMETHOPRIM [Concomitant]
     Active Substance: SULFAMETHOXAZOLE\TRIMETHOPRIM
     Indication: Antifungal prophylaxis
     Dosage: 1 DOSAGE FORM
     Route: 048
     Dates: end: 20240804
  5. SULFAMETHOXAZOLE\TRIMETHOPRIM [Concomitant]
     Active Substance: SULFAMETHOXAZOLE\TRIMETHOPRIM
     Dosage: 1 DOSAGE FORM, QWK
     Route: 048
     Dates: start: 20240805
  6. PREDONINE [Concomitant]
     Active Substance: PREDNISOLONE
     Indication: Microscopic polyangiitis
     Dosage: 12 MILLIGRAM, QD
     Dates: start: 20230918, end: 20240707
  7. PREDONINE [Concomitant]
     Active Substance: PREDNISOLONE
     Dosage: 11 MILLIGRAM, QD
     Dates: start: 20230708

REACTIONS (3)
  - Liver disorder [Recovered/Resolved]
  - Malaise [Unknown]
  - Decreased appetite [Unknown]

NARRATIVE: CASE EVENT DATE: 20240701
